FAERS Safety Report 11540400 (Version 1)
Quarter: 2015Q3

REPORT INFORMATION
  Report Type: Spontaneous
  Country: US (occurrence: US)
  Receive Date: 20150923
  Receipt Date: 20150923
  Transmission Date: 20151125
  Serious: No
  Sender: FDA-Public Use
  Company Number: US-BEH-2014045408

PATIENT
  Age: 52 Year
  Sex: Female
  Weight: 90 kg

DRUGS (16)
  1. FACTIVE [Concomitant]
     Active Substance: GEMIFLOXACIN MESYLATE
  2. RANITIDINE [Concomitant]
     Active Substance: RANITIDINE\RANITIDINE HYDROCHLORIDE
  3. SYMBICORT [Concomitant]
     Active Substance: BUDESONIDE\FORMOTEROL FUMARATE DIHYDRATE
  4. DIPHENHYDRAMINE. [Concomitant]
     Active Substance: DIPHENHYDRAMINE
  5. XOLAIR [Concomitant]
     Active Substance: OMALIZUMAB
  6. EPIPEN [Concomitant]
     Active Substance: EPINEPHRINE
  7. COUMADIN [Concomitant]
     Active Substance: WARFARIN SODIUM
  8. IMITREX [Concomitant]
     Active Substance: SUMATRIPTAN\SUMATRIPTAN SUCCINATE
  9. PREDNISONE. [Concomitant]
     Active Substance: PREDNISONE
  10. CYCLOBENZAPRINE [Concomitant]
     Active Substance: CYCLOBENZAPRINE
  11. ATROVENT [Concomitant]
     Active Substance: IPRATROPIUM BROMIDE
  12. PROAIR HFA [Concomitant]
     Active Substance: ALBUTEROL SULFATE
  13. PRIVIGEN [Suspect]
     Active Substance: HUMAN IMMUNOGLOBULIN G
     Indication: IMMUNODEFICIENCY COMMON VARIABLE
     Route: 042
  14. LEXAPRO [Concomitant]
     Active Substance: ESCITALOPRAM OXALATE
  15. SODIUM CHLORIDE. [Concomitant]
     Active Substance: SODIUM CHLORIDE
  16. NORMAL SALINE [Concomitant]
     Active Substance: SODIUM CHLORIDE

REACTIONS (7)
  - Dyspnoea [Unknown]
  - Muscle strain [Unknown]
  - Chest discomfort [Recovered/Resolved]
  - Rales [Recovered/Resolved]
  - Sinusitis [Unknown]
  - Pain [Recovered/Resolved]
  - Chest discomfort [Unknown]

NARRATIVE: CASE EVENT DATE: 20140918
